FAERS Safety Report 18516656 (Version 2)
Quarter: 2020Q4

REPORT INFORMATION
  Report Type: Report from Study
  Country: GB (occurrence: GB)
  Receive Date: 20201118
  Receipt Date: 20201120
  Transmission Date: 20210114
  Serious: Yes (Hospitalization)
  Sender: FDA-Public Use
  Company Number: GB-BRISTOL-MYERS SQUIBB COMPANY-BMS-2020-096324

PATIENT
  Age: 57 Year
  Sex: Male
  Weight: 86.65 kg

DRUGS (11)
  1. RP2 [Suspect]
     Active Substance: INVESTIGATIONAL PRODUCT
     Dosage: 1 X 10E7 PFU/ML, (1 IN 2 WK) PER PROTOCOL (TOTAL VOLUME 10 ML)
     Route: 036
     Dates: start: 20201021, end: 20201021
  2. METFORMIN [Concomitant]
     Active Substance: METFORMIN HYDROCHLORIDE
     Indication: TYPE 2 DIABETES MELLITUS
     Dosage: 1000 MILLIGRAM, BID
     Route: 048
     Dates: start: 20200724
  3. VENTOLIN [Concomitant]
     Active Substance: ALBUTEROL SULFATE
     Indication: ASTHMA
     Dosage: 2 PUFFS (AS REQUIRED
     Dates: start: 20201001
  4. COCODAMOL [Concomitant]
     Active Substance: ACETAMINOPHEN\CODEINE PHOSPHATE
     Indication: PAIN
     Dosage: 30MG/500 MG X 2 (AS REQUIRED)
     Route: 048
     Dates: start: 20200817
  5. LACTULOSE. [Concomitant]
     Active Substance: LACTULOSE
     Indication: CONSTIPATION
     Dosage: 5 ML,AS REQUIRED
     Route: 048
     Dates: start: 20200904
  6. PREGABALIN. [Concomitant]
     Active Substance: PREGABALIN
     Indication: PAIN
     Dosage: 10 MILLIGRAM
     Route: 048
     Dates: start: 20201005
  7. RP2 [Suspect]
     Active Substance: INVESTIGATIONAL PRODUCT
     Indication: METASTATIC SALIVARY GLAND CANCER
     Dosage: 1 X 10 E6 PFU/ML (1 IN 2 WK) (TOTAL VOLUME 10 ML), PER PROTOCOL
     Route: 036
     Dates: start: 20201007, end: 20201007
  8. APIXABAN [Concomitant]
     Active Substance: APIXABAN
     Indication: PULMONARY EMBOLISM
     Dosage: 5 MILLIGRAM, BID
     Route: 048
     Dates: start: 20200721
  9. MST [MORPHINE SULFATE] [Concomitant]
     Active Substance: MORPHINE SULFATE
     Indication: PAIN
     Dosage: 20 MILLIGRAM, QD
     Route: 048
     Dates: start: 20201005
  10. ORAMORPH SR SUSTAINED RELEASE [Concomitant]
     Active Substance: MORPHINE SULFATE
     Indication: PAIN
     Dosage: 20 MG/B0 MG (2 IN 1 D)
     Route: 048
     Dates: start: 20200901
  11. NIVOLUMAB [Suspect]
     Active Substance: NIVOLUMAB
     Indication: METASTATIC SALIVARY GLAND CANCER
     Dosage: 240 MILLIGRAM, Q2WK
     Route: 042
     Dates: start: 20201021

REACTIONS (2)
  - Dysphagia [Recovered/Resolved]
  - Face oedema [Recovered/Resolved]

NARRATIVE: CASE EVENT DATE: 20201031
